FAERS Safety Report 9111964 (Version 1)
Quarter: 2013Q1

REPORT INFORMATION
  Report Type: Spontaneous
  Country: US (occurrence: US)
  Receive Date: 20130219
  Receipt Date: 20130219
  Transmission Date: 20140127
  Serious: No
  Sender: FDA-Public Use
  Company Number: US-BRISTOL-MYERS SQUIBB COMPANY-17031634

PATIENT
  Age: 54 Year
  Sex: Female

DRUGS (9)
  1. ORENCIA [Suspect]
     Indication: RHEUMATOID ARTHRITIS
     Route: 058
     Dates: start: 201209
  2. ATIVAN [Concomitant]
  3. LOMOTIL [Concomitant]
  4. PREDNISONE [Concomitant]
  5. NEURONTIN [Concomitant]
  6. BENADRYL [Concomitant]
  7. DILAUDID [Concomitant]
  8. NORTRIPTYLINE [Concomitant]
  9. TENORETIC [Concomitant]

REACTIONS (2)
  - Nausea [Unknown]
  - Pruritus [Unknown]
